FAERS Safety Report 13584287 (Version 2)
Quarter: 2017Q3

REPORT INFORMATION
  Report Type: Spontaneous
  Country: US (occurrence: US)
  Receive Date: 20170526
  Receipt Date: 20170815
  Transmission Date: 20171127
  Serious: Yes (Other)
  Sender: FDA-Public Use
  Company Number: US-PFIZER INC-2017229249

PATIENT
  Age: 73 Year
  Sex: Male

DRUGS (2)
  1. INDOMETHACIN /00003801/ [Suspect]
     Active Substance: INDOMETHACIN
     Indication: OSTEOARTHRITIS
     Dosage: 25 MG, 1X/DAY (AT NIGHT)
     Route: 048
  2. INDOMETHACIN /00003801/ [Suspect]
     Active Substance: INDOMETHACIN
     Indication: CHONDROCALCINOSIS PYROPHOSPHATE

REACTIONS (1)
  - Renal impairment [Unknown]
